FAERS Safety Report 15409559 (Version 1)
Quarter: 2018Q3

REPORT INFORMATION
  Report Type: Spontaneous
  Country: CA (occurrence: CA)
  Receive Date: 20180920
  Receipt Date: 20180920
  Transmission Date: 20181010
  Serious: Yes (Other)
  Sender: FDA-Public Use
  Company Number: CA-ACTELION-A-NJ2018-178795

PATIENT
  Age: 67 Year
  Sex: Female

DRUGS (17)
  1. ADCIRCA [Concomitant]
     Active Substance: TADALAFIL
  2. REACTINE [Concomitant]
  3. ASA [Concomitant]
     Active Substance: ASPIRIN
  4. FUROSEMIDE. [Concomitant]
     Active Substance: FUROSEMIDE
  5. SYNTHROID [Concomitant]
     Active Substance: LEVOTHYROXINE SODIUM
  6. VITAMIN B12 [Concomitant]
     Active Substance: CYANOCOBALAMIN
  7. LIPITOR [Concomitant]
     Active Substance: ATORVASTATIN CALCIUM
  8. UPTRAVI [Suspect]
     Active Substance: SELEXIPAG
     Indication: PULMONARY ARTERIAL HYPERTENSION
     Dosage: 1600 MCG, UNK
     Route: 048
     Dates: start: 20180605
  9. SERTRALINE [Concomitant]
     Active Substance: SERTRALINE HYDROCHLORIDE
  10. JUBLIA [Concomitant]
     Active Substance: EFINACONAZOLE
  11. VITAMIN D [Concomitant]
     Active Substance: CHOLECALCIFEROL
  12. ALDACTONE [Concomitant]
     Active Substance: SPIRONOLACTONE
  13. OPSUMIT [Suspect]
     Active Substance: MACITENTAN
     Indication: PULMONARY ARTERIAL HYPERTENSION
     Dosage: 10 MG, UNK
     Route: 048
  14. CALCIUM [Concomitant]
     Active Substance: CALCIUM
  15. MULTIVITAMIN [Concomitant]
     Active Substance: VITAMINS
  16. BISOPROLOL [Concomitant]
     Active Substance: BISOPROLOL
  17. RANITIDINE. [Concomitant]
     Active Substance: RANITIDINE

REACTIONS (2)
  - Neoplasm malignant [Not Recovered/Not Resolved]
  - Palliative care [Not Recovered/Not Resolved]

NARRATIVE: CASE EVENT DATE: 20180905
